FAERS Safety Report 5259069-7 (Version None)
Quarter: 2007Q1

REPORT INFORMATION
  Report Type: 
  Country: None (occurrence: None)
  Receive Date: 20070308
  Receipt Date: 20070227
  Transmission Date: 20070707
  Serious: Yes (Other)
  Sender: FDA-Public Use
  Company Number: FR-PFIZER INC-2007016474

PATIENT
  Sex: Female

DRUGS (3)
  1. LYRICA [Suspect]
     Indication: NEURALGIA
  2. ORAL CONTRACEPTIVE NOS [Concomitant]
     Route: 048
  3. DRUG, UNSPECIFIED [Concomitant]

REACTIONS (1)
  - UNINTENDED PREGNANCY [None]
